FAERS Safety Report 12741009 (Version 1)
Quarter: 2016Q3

REPORT INFORMATION
  Report Type: Spontaneous
  Country: GB (occurrence: GB)
  Receive Date: 20160914
  Receipt Date: 20160914
  Transmission Date: 20161109
  Serious: Yes (Other)
  Sender: FDA-Public Use
  Company Number: GB-SUN PHARMACEUTICAL INDUSTRIES LTD-2016RR-120484

PATIENT
  Age: 69 Year
  Weight: 75 kg

DRUGS (5)
  1. LISINOPRIL. [Concomitant]
     Active Substance: LISINOPRIL
     Indication: HYPERTENSION
     Dosage: 20 MG, UNK
     Route: 048
     Dates: start: 20150402
  2. ASPIRIN. [Concomitant]
     Active Substance: ASPIRIN
     Indication: PROPHYLAXIS
     Dosage: 75 MG, UNK
     Route: 048
     Dates: start: 20141113
  3. ATORVASTATIN [Concomitant]
     Active Substance: ATORVASTATIN
     Indication: PROPHYLAXIS
     Dosage: 40 MG, UNK
     Route: 048
     Dates: start: 20141223
  4. LANSOPRAZOLE. [Concomitant]
     Active Substance: LANSOPRAZOLE
     Indication: PRODUCT USED FOR UNKNOWN INDICATION
     Dosage: PRN BASIS
     Route: 048
     Dates: start: 20160125
  5. SERTRALINE [Suspect]
     Active Substance: SERTRALINE HYDROCHLORIDE
     Indication: STRESS
     Dosage: 50 MG, UNK
     Route: 048
     Dates: start: 20160602

REACTIONS (20)
  - Asthenia [Recovered/Resolved]
  - Psychiatric symptom [Recovered/Resolved]
  - Diarrhoea [Recovered/Resolved]
  - Headache [Recovered/Resolved]
  - Somnolence [Recovered/Resolved]
  - Vertigo [Recovered/Resolved]
  - Decreased appetite [Recovered/Resolved]
  - Nausea [Recovered/Resolved]
  - Eye pain [Recovered/Resolved]
  - Amnesia [Recovered/Resolved]
  - Haemorrhage subcutaneous [Recovered/Resolved]
  - Heart rate increased [Recovered/Resolved]
  - Disturbance in attention [Recovered/Resolved]
  - Mental disorder [Recovered/Resolved]
  - Dyskinesia [Recovered/Resolved]
  - Palpitations [Recovered/Resolved]
  - Tinnitus [Recovered/Resolved]
  - Dizziness postural [Recovered/Resolved]
  - Anger [Recovered/Resolved]
  - Thinking abnormal [Recovered/Resolved]
